FAERS Safety Report 5519163-X (Version None)
Quarter: 2007Q4

REPORT INFORMATION
  Report Type: 
  Country: None (occurrence: None)
  Receive Date: 20071116
  Receipt Date: 20071114
  Transmission Date: 20080405
  Serious: Yes (Death)
  Sender: FDA-Public Use
  Company Number: US-NOVOPROD-269318

PATIENT

DRUGS (1)
  1. NOVOSEVEN [Suspect]
     Indication: HAEMORRHAGE
     Dosage: 80 UG/KG, UNK
     Route: 042

REACTIONS (3)
  - AORTIC THROMBOSIS [None]
  - INTRACARDIAC THROMBUS [None]
  - THROMBOSIS IN DEVICE [None]
